FAERS Safety Report 7393414-1 (Version None)
Quarter: 2011Q2

REPORT INFORMATION
  Report Type: 
  Country: None (occurrence: None)
  Receive Date: 20110405
  Receipt Date: 20110322
  Transmission Date: 20111010
  Serious: Yes (Hospitalization)
  Sender: FDA-Public Use
  Company Number: US-RANBAXY-2011US-42936

PATIENT
  Age: 39 Year
  Sex: Female

DRUGS (1)
  1. VERAPAMIL [Suspect]
     Indication: HYPERTENSION
     Dosage: 17 TABS OF 240 MG (TOTAL DOSE 4.08 G)
     Route: 048

REACTIONS (7)
  - HYPOTENSION [None]
  - ATRIOVENTRICULAR BLOCK SECOND DEGREE [None]
  - CHEST DISCOMFORT [None]
  - OVERDOSE [None]
  - HYPERHIDROSIS [None]
  - LETHARGY [None]
  - DYSPNOEA [None]
